FAERS Safety Report 4661275-7 (Version None)
Quarter: 2005Q2

REPORT INFORMATION
  Report Type: 
  Country: None (occurrence: None)
  Receive Date: 20050513
  Receipt Date: 20040804
  Transmission Date: 20051028
  Serious: Yes (Other)
  Sender: FDA-Public Use
  Company Number: PHEH2004US08447

PATIENT
  Age: 77 Year
  Sex: Female
  Weight: 81 kg

DRUGS (7)
  1. HYDROCHLOROTHIAZIDE [Concomitant]
     Indication: HYPERTENSION
  2. VITAMINS [Concomitant]
  3. HYDROCODONE BITARTRATE [Concomitant]
     Indication: PAIN
     Dosage: UNK, PRN
  4. FEMARA [Suspect]
     Indication: BREAST CANCER
     Dosage: 2.5 MG, QD
     Route: 048
     Dates: start: 20040314
  5. POTASSIUM CHLORIDE [Concomitant]
  6. ZOLOFT [Concomitant]
  7. CLONAZEPAM [Concomitant]

REACTIONS (22)
  - ABDOMINAL DISTENSION [None]
  - ARTHRITIS [None]
  - BACK PAIN [None]
  - BONE PAIN [None]
  - BREAST ATROPHY [None]
  - COUGH [None]
  - DEPRESSION [None]
  - FALL [None]
  - FATIGUE [None]
  - HOT FLUSH [None]
  - HUMERUS FRACTURE [None]
  - HYPERHIDROSIS [None]
  - INCREASED UPPER AIRWAY SECRETION [None]
  - INSOMNIA [None]
  - IRRITABILITY [None]
  - MUSCULOSKELETAL STIFFNESS [None]
  - NAUSEA [None]
  - RASH [None]
  - URINARY INCONTINENCE [None]
  - URINE OUTPUT INCREASED [None]
  - WEIGHT INCREASED [None]
  - WHEEZING [None]
